FAERS Safety Report 4868442-8 (Version None)
Quarter: 2005Q4

REPORT INFORMATION
  Report Type: 
  Country: None (occurrence: None)
  Receive Date: 20051229
  Receipt Date: 20051216
  Transmission Date: 20060501
  Serious: Yes (Death)
  Sender: FDA-Public Use
  Company Number: DE-AVENTIS-200512935DE

PATIENT
  Age: 62 Year
  Sex: Male

DRUGS (10)
  1. APIDRA [Suspect]
     Indication: DIABETES MELLITUS
     Route: 058
     Dates: start: 20050501
  2. LANTUS [Concomitant]
     Indication: DIABETES MELLITUS
     Route: 058
  3. ALLOPURINOL [Concomitant]
     Route: 048
  4. ARELIX [Concomitant]
     Dosage: DOSE: 1/2
     Route: 048
  5. AMINEURIN [Concomitant]
     Route: 048
  6. METILAR [Concomitant]
     Route: 048
  7. AQUAPHOR TABLET [Concomitant]
     Dosage: DOSE: 1/2
     Route: 048
  8. TRAMAL [Concomitant]
     Route: 048
  9. LYRICA [Concomitant]
     Route: 048
  10. LOCOL [Concomitant]
     Route: 048

REACTIONS (2)
  - HYPOGLYCAEMIA [None]
  - TREATMENT NONCOMPLIANCE [None]
